FAERS Safety Report 15782557 (Version 1)
Quarter: 2019Q1

REPORT INFORMATION
  Report Type: Spontaneous
  Country: US (occurrence: US)
  Receive Date: 20190102
  Receipt Date: 20190102
  Transmission Date: 20190417
  Serious: Yes (Hospitalization, Other)
  Sender: FDA-Public Use
  Company Number: US-TORRENT-00007345

PATIENT
  Age: 14 Year
  Sex: Female

DRUGS (4)
  1. LORAZEPAM. [Suspect]
     Active Substance: LORAZEPAM
     Indication: CATATONIA
     Dosage: UNKNOWN
  2. RISPERIDONE. [Suspect]
     Active Substance: RISPERIDONE
     Indication: HALLUCINATION, AUDITORY
     Dosage: UNKNOWN
  3. ESCITALOPRAM [Suspect]
     Active Substance: ESCITALOPRAM OXALATE
     Indication: DEPRESSION
     Dosage: UNKNOWN
  4. TOPIRAMATE. [Suspect]
     Active Substance: TOPIRAMATE
     Indication: HEADACHE
     Dosage: UNKNOWN

REACTIONS (8)
  - Hallucination, auditory [Unknown]
  - Orthostatic hypotension [Unknown]
  - Joint stiffness [Unknown]
  - Depression [Unknown]
  - Suicidal ideation [Unknown]
  - Catatonia [Unknown]
  - Condition aggravated [Unknown]
  - Off label use [Unknown]
